FAERS Safety Report 7071430-7 (Version None)
Quarter: 2010Q4

REPORT INFORMATION
  Report Type: 
  Country: None (occurrence: None)
  Receive Date: 20101029
  Receipt Date: 20100507
  Transmission Date: 20110411
  Serious: No
  Sender: FDA-Public Use
  Company Number: A0804742A

PATIENT
  Age: 59 Year
  Sex: Male

DRUGS (9)
  1. ADVAIR DISKUS 100/50 [Suspect]
     Indication: ASTHMA
     Dosage: 1PUFF TWICE PER DAY
     Route: 055
     Dates: start: 20050101
  2. PROAIR HFA [Concomitant]
  3. NAPROXEN [Concomitant]
  4. CYMBALTA [Concomitant]
  5. CLOMIPRAMINE [Concomitant]
  6. TRAZODONE [Concomitant]
  7. ZETIA [Concomitant]
  8. DEPAKOTE ER [Concomitant]
  9. VERAPAMIL [Concomitant]

REACTIONS (4)
  - CHEST DISCOMFORT [None]
  - DRUG INEFFECTIVE [None]
  - DYSPNOEA [None]
  - PRODUCT QUALITY ISSUE [None]
